FAERS Safety Report 12099933 (Version 1)
Quarter: 2016Q1

REPORT INFORMATION
  Report Type: Spontaneous
  Country: US (occurrence: US)
  Receive Date: 20160222
  Receipt Date: 20160222
  Transmission Date: 20160526
  Serious: No
  Sender: FDA-Public Use
  Company Number: US-MYLANLABS-2015M1041504

PATIENT
  Age: 75 Year
  Sex: Female
  Weight: 68.93 kg

DRUGS (5)
  1. INVOKANA [Concomitant]
     Active Substance: CANAGLIFLOZIN
     Indication: DIABETES MELLITUS
     Dosage: 100 MG, QD
     Route: 048
     Dates: start: 201508
  2. ETIDRONATE DISODIUM TABLETS, USP [Suspect]
     Active Substance: ETIDRONATE DISODIUM
     Indication: OSTEOARTHRITIS
     Dosage: 200 MG, QD
     Route: 048
     Dates: start: 20151009, end: 20151105
  3. WELCHOL [Concomitant]
     Active Substance: COLESEVELAM HYDROCHLORIDE
     Indication: DIABETES MELLITUS
     Dosage: 625 MG, QD
     Route: 048
     Dates: start: 20150920
  4. VICTOZA [Concomitant]
     Active Substance: LIRAGLUTIDE
     Indication: DIABETES MELLITUS
     Dosage: 1.8 MG, QD
     Route: 058
     Dates: start: 201508
  5. ETIDRONATE DISODIUM TABLETS, USP [Suspect]
     Active Substance: ETIDRONATE DISODIUM
     Indication: OFF LABEL USE

REACTIONS (2)
  - Nausea [Recovered/Resolved]
  - Headache [Recovered/Resolved]

NARRATIVE: CASE EVENT DATE: 20151009
